FAERS Safety Report 23106782 (Version 1)
Quarter: 2023Q4

REPORT INFORMATION
  Report Type: Report from Study
  Country: JP (occurrence: JP)
  Receive Date: 20231026
  Receipt Date: 20231026
  Transmission Date: 20240109
  Serious: Yes (Other)
  Sender: FDA-Public Use
  Company Number: JP-TAKEDA-2023TJP013700

PATIENT
  Age: 59 Year
  Sex: Male
  Weight: 60 kg

DRUGS (7)
  1. PANITUMUMAB [Suspect]
     Active Substance: PANITUMUMAB
     Indication: Colorectal adenocarcinoma
     Dosage: 360 MILLIGRAM, Q2WK
     Route: 065
     Dates: start: 20201006, end: 20210316
  2. PANITUMUMAB [Suspect]
     Active Substance: PANITUMUMAB
     Dosage: 360 MILLIGRAM  *SINGLE
     Route: 065
     Dates: start: 20210406, end: 20210406
  3. IRINOTECAN [Suspect]
     Active Substance: IRINOTECAN
     Indication: Colorectal adenocarcinoma
     Dosage: 170 MILLIGRAM
     Route: 065
     Dates: start: 20201006, end: 20201006
  4. IRINOTECAN [Suspect]
     Active Substance: IRINOTECAN
     Dosage: 170 MILLIGRAM
     Route: 065
     Dates: start: 20201104, end: 20201104
  5. IRINOTECAN [Suspect]
     Active Substance: IRINOTECAN
     Dosage: 170 MILLIGRAM
     Route: 065
     Dates: start: 20201201, end: 20201201
  6. IRINOTECAN [Suspect]
     Active Substance: IRINOTECAN
     Dosage: 170 MILLIGRAM, Q2WEEKS
     Route: 065
     Dates: start: 20210105, end: 20210316
  7. IRINOTECAN [Suspect]
     Active Substance: IRINOTECAN
     Dosage: 170 MILLIGRAM
     Route: 065
     Dates: start: 20210406, end: 20210406

REACTIONS (6)
  - Neutrophil count decreased [Unknown]
  - Amylase increased [Unknown]
  - Haemoglobin decreased [Not Recovered/Not Resolved]
  - White blood cell count decreased [Unknown]
  - Blood magnesium decreased [Unknown]
  - Blood bilirubin increased [Unknown]
